FAERS Safety Report 10218759 (Version 1)
Quarter: 2014Q2

REPORT INFORMATION
  Report Type: Spontaneous
  Country: US (occurrence: None)
  Receive Date: 20140604
  Receipt Date: 20140604
  Transmission Date: 20141212
  Serious: Yes (Disabling, Other)
  Sender: FDA-Public Use
  Company Number: None

PATIENT
  Age: 60 Year
  Sex: Male
  Weight: 72.58 kg

DRUGS (9)
  1. MODAFINIL [Suspect]
     Indication: SLEEP APNOEA SYNDROME
     Dosage: 2 TABS. QD BY MOUTH.
     Route: 048
     Dates: start: 20140505, end: 20140515
  2. MODAFINIL [Suspect]
     Indication: SOMNOLENCE
     Dosage: 2 TABS. QD BY MOUTH.
     Route: 048
     Dates: start: 20140505, end: 20140515
  3. SYNTHROID [Concomitant]
  4. LIPITOR [Concomitant]
  5. CARVEDILOL [Concomitant]
  6. FLO-MAX [Concomitant]
  7. REQUIP [Concomitant]
  8. FOLATE [Concomitant]
  9. B12 [Concomitant]

REACTIONS (7)
  - Nausea [None]
  - Abdominal pain upper [None]
  - Headache [None]
  - Fatigue [None]
  - Malaise [None]
  - Product substitution issue [None]
  - Product quality issue [None]
